FAERS Safety Report 6547103-3 (Version None)
Quarter: 2010Q1

REPORT INFORMATION
  Report Type: 
  Country: None (occurrence: None)
  Receive Date: 20100122
  Receipt Date: 20100115
  Transmission Date: 20100710
  Serious: Yes (Hospitalization, Other)
  Sender: FDA-Public Use
  Company Number: NZ-ROXANE LABORATORIES, INC.-2010-RO-00037RO

PATIENT
  Age: 43 Year
  Sex: Female
  Weight: 86 kg

DRUGS (20)
  1. PREDNISONE [Suspect]
     Indication: IMMUNOSUPPRESSION
  2. FUROSEMIDE [Suspect]
  3. MYCOPHENOLATE MOFETIL [Suspect]
  4. TACROLIMUS [Suspect]
     Indication: IMMUNOSUPPRESSION
  5. TACROLIMUS [Suspect]
     Dosage: 4 MG
  6. INSULIN [Suspect]
     Indication: TYPE 1 DIABETES MELLITUS
  7. LOW MOLECULAR WEIGHT HEPARIN [Suspect]
     Indication: PROPHYLAXIS
  8. CARVEDILOL [Suspect]
  9. OMEPRAZOLE [Suspect]
  10. SIMVASTATIN [Suspect]
  11. OXYCONTIN [Suspect]
  12. FELODIPINE [Suspect]
  13. PRAZOSIN HYDROCHLORIDE [Suspect]
  14. ATACAND [Suspect]
  15. NEORECORMAN [Suspect]
  16. ASPIRIN [Suspect]
  17. CLOPIDOGREL [Suspect]
  18. AUGMENTIN [Suspect]
     Indication: LOWER RESPIRATORY TRACT INFECTION
     Route: 048
  19. OSELTAMIVIR [Suspect]
  20. MEROPENEM [Suspect]
     Route: 042

REACTIONS (7)
  - DIARRHOEA [None]
  - H1N1 INFLUENZA [None]
  - PERICARDIAL EFFUSION [None]
  - PULMONARY OEDEMA [None]
  - RENAL FAILURE ACUTE [None]
  - RESPIRATORY FAILURE [None]
  - SKIN ULCER [None]
